FAERS Safety Report 15607082 (Version 1)
Quarter: 2018Q4

REPORT INFORMATION
  Report Type: Spontaneous
  Country: US (occurrence: US)
  Receive Date: 20181106
  Receipt Date: 20181106
  Transmission Date: 20190205
  Serious: Yes (Death, Hospitalization)
  Sender: FDA-Public Use
  Company Number: None

PATIENT
  Age: 66 Year
  Sex: Male

DRUGS (2)
  1. WARFARIN [Suspect]
     Active Substance: WARFARIN
     Indication: CEREBROVASCULAR ACCIDENT
     Dates: start: 20180720, end: 20180926
  2. WARFARIN [Suspect]
     Active Substance: WARFARIN
     Indication: PROPHYLAXIS
     Dates: start: 20180720, end: 20180926

REACTIONS (9)
  - International normalised ratio increased [None]
  - Dizziness [None]
  - Bradycardia [None]
  - Hypotension [None]
  - Acute hepatic failure [None]
  - Haemodynamic instability [None]
  - Haemorrhage [None]
  - Retroperitoneal haematoma [None]
  - Fall [None]

NARRATIVE: CASE EVENT DATE: 20180930
